FAERS Safety Report 7414808-1 (Version None)
Quarter: 2011Q2

REPORT INFORMATION
  Report Type: 
  Country: None (occurrence: None)
  Receive Date: 20110414
  Receipt Date: 20101021
  Transmission Date: 20111010
  Serious: No
  Sender: FDA-Public Use
  Company Number: A0888057A

PATIENT
  Age: 63 Year
  Sex: Female

DRUGS (6)
  1. JANUVIA [Concomitant]
  2. TOPROL-XL [Concomitant]
  3. WELLBUTRIN [Concomitant]
  4. BENADRYL [Concomitant]
  5. VIT D [Concomitant]
  6. LUXIQ [Suspect]
     Indication: ALOPECIA
     Dosage: 1APP PER DAY
     Route: 061
     Dates: start: 20101020

REACTIONS (1)
  - HEADACHE [None]
